FAERS Safety Report 4503752-5 (Version None)
Quarter: 2004Q4

REPORT INFORMATION
  Report Type: 
  Country: None (occurrence: None)
  Receive Date: 20041115
  Receipt Date: 20041104
  Transmission Date: 20050328
  Serious: Yes (Death, Hospitalization, Other)
  Sender: FDA-Public Use
  Company Number: 2004-03-0376

PATIENT
  Age: 59 Year
  Sex: Male
  Weight: 68.9467 kg

DRUGS (3)
  1. TEMODAL [Suspect]
     Indication: GLIOBLASTOMA
     Dosage: 250 MG QD ORAL
     Route: 048
     Dates: start: 20040202, end: 20040206
  2. DECADRON [Concomitant]
  3. DILANTIN [Concomitant]

REACTIONS (6)
  - DECREASED APPETITE [None]
  - DISEASE PROGRESSION [None]
  - HAEMATOMA [None]
  - PANCYTOPENIA [None]
  - PYREXIA [None]
  - TREMOR [None]
